FAERS Safety Report 8807028 (Version 1)
Quarter: 2012Q4

REPORT INFORMATION
  Report Type: 
  Country: US (occurrence: US)
  Receive Date: 20120925
  Receipt Date: 20120925
  Transmission Date: 20130627
  Serious: Yes (Other)
  Sender: FDA-Public Use
  Company Number: PHEH2012US018603

PATIENT
  Age: 56 Year
  Sex: Female
  Weight: 61.22 kg

DRUGS (6)
  1. GILENYA [Suspect]
     Dosage: 0.5 mg, QD
     Route: 048
  2. LEVOTHYROXINE [Concomitant]
     Dosage: 175 ug, UNK
  3. CIPRO [Concomitant]
     Dosage: 500 mg, UNK
  4. LISINOPRIL [Concomitant]
     Dosage: 10 mg, UNK
  5. FLUOXETINE [Concomitant]
     Dosage: 10 mg, UNK
  6. OMEPRAZOLE [Concomitant]
     Dosage: 10 mg, UNK

REACTIONS (3)
  - Gastric ulcer [Unknown]
  - Urinary tract infection [Unknown]
  - Headache [Unknown]
